FAERS Safety Report 16530910 (Version 1)
Quarter: 2019Q3

REPORT INFORMATION
  Report Type: Spontaneous
  Country: US (occurrence: US)
  Receive Date: 20190704
  Receipt Date: 20190704
  Transmission Date: 20191004
  Serious: No
  Sender: FDA-Public Use
  Company Number: US-009507513-1809USA008709

PATIENT
  Age: 37 Year
  Sex: Female

DRUGS (3)
  1. FOLLISTIM AQ [Suspect]
     Active Substance: FOLLITROPIN
     Indication: INFERTILITY FEMALE
     Dosage: 600 IU, QD
     Dates: start: 20151105
  2. MENOPUR [Concomitant]
     Active Substance: FOLLITROPIN\LUTEINIZING HORMONE
     Dosage: 75 IU, UNK
  3. PROGESTERONE. [Concomitant]
     Active Substance: PROGESTERONE
     Dosage: DOSE: 50 MG/ML

REACTIONS (1)
  - Injection site reaction [Unknown]

NARRATIVE: CASE EVENT DATE: 20180917
